FAERS Safety Report 15349058 (Version 1)
Quarter: 2018Q3

REPORT INFORMATION
  Report Type: Spontaneous
  Country: GB (occurrence: GB)
  Receive Date: 20180904
  Receipt Date: 20180904
  Transmission Date: 20181010
  Serious: Yes (Other)
  Sender: FDA-Public Use
  Company Number: GB-PFIZER INC-2018349573

PATIENT
  Age: 51 Year
  Sex: Female

DRUGS (1)
  1. GENOTROPIN [Suspect]
     Active Substance: SOMATROPIN
     Indication: HORMONE REPLACEMENT THERAPY
     Dosage: 0.6 MG, 1X/DAY

REACTIONS (1)
  - Leukaemia [Unknown]
